FAERS Safety Report 5075712-X (Version None)
Quarter: 2006Q3

REPORT INFORMATION
  Report Type: 
  Country: None (occurrence: None)
  Receive Date: 20060804
  Receipt Date: 20060802
  Transmission Date: 20061208
  Serious: Yes (Hospitalization, Other)
  Sender: FDA-Public Use
  Company Number: HQWYE708602AUG06

PATIENT
  Age: 79 Year
  Sex: Male

DRUGS (6)
  1. CORDARONE [Suspect]
     Dosage: 600 MG 1X PER 1 DAY ORAL
     Route: 048
     Dates: start: 20060415, end: 20060601
  2. TRILEPTAL [Suspect]
     Dosage: SEE IMAGE
     Route: 048
     Dates: start: 20060415, end: 20060601
  3. TRILEPTAL [Suspect]
     Dosage: SEE IMAGE
     Route: 048
     Dates: start: 20060601, end: 20060621
  4. EFFERALGAN CODEINE             (PARACETAMOL/CODEINE PHOSPHATE) [Concomitant]
  5. ................... [Concomitant]
  6. LEVOTHYROXINE SODIUM [Concomitant]

REACTIONS (2)
  - CHOLESTASIS [None]
  - GAMMA-GLUTAMYLTRANSFERASE INCREASED [None]
